FAERS Safety Report 18035614 (Version 1)
Quarter: 2020Q3

REPORT INFORMATION
  Report Type: Spontaneous
  Country: US (occurrence: US)
  Receive Date: 20200717
  Receipt Date: 20200717
  Transmission Date: 20201103
  Serious: Yes (Life-Threatening, Hospitalization)
  Sender: FDA-Public Use
  Company Number: None

PATIENT
  Age: 58 Year
  Sex: Female
  Weight: 45 kg

DRUGS (9)
  1. CELEXA [Concomitant]
     Active Substance: CITALOPRAM HYDROBROMIDE
  2. LAMICTAL [Concomitant]
     Active Substance: LAMOTRIGINE
  3. ASPIRIN. [Concomitant]
     Active Substance: ASPIRIN
  4. PENICILLIN [Concomitant]
     Active Substance: PENICILLIN
  5. LEXISCAN [Suspect]
     Active Substance: REGADENOSON
     Indication: CARDIAC STRESS TEST
     Dosage: ?          QUANTITY:1 INJECTION(S);?
     Route: 042
     Dates: end: 20200715
  6. MORPHINE [Concomitant]
     Active Substance: MORPHINE
  7. WELLBUTRIN [Concomitant]
     Active Substance: BUPROPION HYDROCHLORIDE
  8. FLORINEF ACETATE [Concomitant]
     Active Substance: FLUDROCORTISONE ACETATE
  9. DAIZEPAM [Concomitant]
     Active Substance: DIAZEPAM

REACTIONS (5)
  - Weight [None]
  - Dysstasia [None]
  - Headache [None]
  - Paralysis [None]
  - Nausea [None]

NARRATIVE: CASE EVENT DATE: 20200715
